FAERS Safety Report 5163043-9 (Version None)
Quarter: 2006Q4

REPORT INFORMATION
  Report Type: 
  Country: None (occurrence: None)
  Receive Date: 20061201
  Receipt Date: 20001214
  Transmission Date: 20070319
  Serious: Yes (Hospitalization)
  Sender: FDA-Public Use
  Company Number: FR-BOEHRINGER INGELHEIM PHARMACEUTICALS, INC.-2000-FF-S0744

PATIENT
  Sex: Male
  Weight: 3 kg

DRUGS (10)
  1. VIRAMUNE [Suspect]
     Indication: PROPHYLAXIS AGAINST HIV INFECTION
     Route: 048
     Dates: start: 19990402, end: 19990402
  2. RETROVIR [Suspect]
     Indication: PROPHYLAXIS AGAINST HIV INFECTION
     Route: 048
  3. VIDEX [Suspect]
     Indication: PROPHYLAXIS AGAINST HIV INFECTION
     Route: 064
  4. RETROVIR [Suspect]
     Route: 064
  5. RETROVIR [Suspect]
     Route: 015
     Dates: start: 19990402, end: 19990402
  6. VIRAMUNE [Suspect]
     Route: 064
     Dates: start: 19990402, end: 19990402
  7. IRON [Concomitant]
     Route: 064
  8. VITAMINS [Concomitant]
     Route: 064
  9. ERCEFURYL [Concomitant]
     Indication: DIARRHOEA
     Route: 064
  10. SALBUTAMOL [Concomitant]
     Indication: UTERINE CONTRACTIONS ABNORMAL
     Route: 064

REACTIONS (6)
  - ANAEMIA [None]
  - ANAEMIA NEONATAL [None]
  - DRUG EXPOSURE DURING PREGNANCY [None]
  - HYPERTRIGLYCERIDAEMIA [None]
  - NEUTROPENIA [None]
  - NEUTROPENIA NEONATAL [None]
